FAERS Safety Report 11321112 (Version 4)
Quarter: 2021Q2

REPORT INFORMATION
  Report Type: Report from Study
  Country: US (occurrence: US)
  Receive Date: 20150729
  Receipt Date: 20210629
  Transmission Date: 20210716
  Serious: Yes (Other)
  Sender: FDA-Public Use
  Company Number: US-SHIRE-US201508594

PATIENT
  Age: 55 Year
  Sex: Male

DRUGS (3)
  1. C1 INHIBITOR (HUMAN) [Suspect]
     Active Substance: HUMAN C1-ESTERASE INHIBITOR
     Indication: HEREDITARY ANGIOEDEMA
     Dosage: 1000 MILLIGRAM, 2/WEEK
     Route: 065
     Dates: start: 20090330
  2. C1 INHIBITOR (HUMAN) [Suspect]
     Active Substance: HUMAN C1-ESTERASE INHIBITOR
     Indication: HEREDITARY ANGIOEDEMA
     Dosage: 1000 MILLIGRAM, 2/WEEK
     Route: 065
     Dates: start: 20090330
  3. C1 INHIBITOR (HUMAN) [Suspect]
     Active Substance: HUMAN C1-ESTERASE INHIBITOR
     Indication: HEREDITARY ANGIOEDEMA
     Dosage: 1000 MILLIGRAM, 2/WEEK
     Route: 065
     Dates: start: 20090330

REACTIONS (4)
  - Pharyngeal swelling [Unknown]
  - Inappropriate schedule of product administration [Not Recovered/Not Resolved]
  - Hereditary angioedema [Unknown]
  - Off label use [Not Recovered/Not Resolved]

NARRATIVE: CASE EVENT DATE: 20150212
